FAERS Safety Report 4477671-7 (Version None)
Quarter: 2004Q3

REPORT INFORMATION
  Report Type: 
  Country: None (occurrence: None)
  Receive Date: 20040923
  Receipt Date: 20040803
  Transmission Date: 20050211
  Serious: No
  Sender: FDA-Public Use
  Company Number: USA040874472

PATIENT
  Age: 61 Year
  Sex: Female

DRUGS (9)
  1. FORTEO [Suspect]
     Indication: OSTEOPOROSIS
     Dates: start: 20040722
  2. NEXIUM [Concomitant]
  3. ATROVENT [Concomitant]
  4. FLOVENT [Concomitant]
  5. XANAX (ALPRAZOLAM DUM) [Concomitant]
  6. ANXIETY [Concomitant]
  7. DILTIAZEM [Concomitant]
  8. PREMARIN [Concomitant]
  9. OLUX (CLOBETASOL PROPIONATE) [Concomitant]

REACTIONS (1)
  - INJECTION SITE ERYTHEMA [None]
